FAERS Safety Report 25477800 (Version 1)
Quarter: 2025Q2

REPORT INFORMATION
  Report Type: Spontaneous
  Country: MY (occurrence: MY)
  Receive Date: 20250625
  Receipt Date: 20250625
  Transmission Date: 20250716
  Serious: Yes (Other)
  Sender: MYLAN
  Company Number: MY-MYLANLABS-2025M1053450

PATIENT
  Age: 8 Year
  Sex: Female

DRUGS (28)
  1. ETOPOSIDE [Suspect]
     Active Substance: ETOPOSIDE
     Indication: Histiocytic sarcoma
  2. ETOPOSIDE [Suspect]
     Active Substance: ETOPOSIDE
     Route: 065
  3. ETOPOSIDE [Suspect]
     Active Substance: ETOPOSIDE
     Route: 065
  4. ETOPOSIDE [Suspect]
     Active Substance: ETOPOSIDE
  5. CARBOPLATIN [Suspect]
     Active Substance: CARBOPLATIN
     Indication: Histiocytic sarcoma
  6. CARBOPLATIN [Suspect]
     Active Substance: CARBOPLATIN
     Route: 065
  7. CARBOPLATIN [Suspect]
     Active Substance: CARBOPLATIN
     Route: 065
  8. CARBOPLATIN [Suspect]
     Active Substance: CARBOPLATIN
  9. IFOSFAMIDE [Suspect]
     Active Substance: IFOSFAMIDE
     Indication: Histiocytic sarcoma
  10. IFOSFAMIDE [Suspect]
     Active Substance: IFOSFAMIDE
     Route: 065
  11. IFOSFAMIDE [Suspect]
     Active Substance: IFOSFAMIDE
     Route: 065
  12. IFOSFAMIDE [Suspect]
     Active Substance: IFOSFAMIDE
  13. CYCLOPHOSPHAMIDE [Concomitant]
     Active Substance: CYCLOPHOSPHAMIDE
     Indication: Peripheral T-cell lymphoma unspecified
  14. CYCLOPHOSPHAMIDE [Concomitant]
     Active Substance: CYCLOPHOSPHAMIDE
     Route: 065
  15. CYCLOPHOSPHAMIDE [Concomitant]
     Active Substance: CYCLOPHOSPHAMIDE
     Route: 065
  16. CYCLOPHOSPHAMIDE [Concomitant]
     Active Substance: CYCLOPHOSPHAMIDE
  17. DOXORUBICIN [Concomitant]
     Active Substance: DOXORUBICIN
     Indication: Peripheral T-cell lymphoma unspecified
  18. DOXORUBICIN [Concomitant]
     Active Substance: DOXORUBICIN
     Route: 065
  19. DOXORUBICIN [Concomitant]
     Active Substance: DOXORUBICIN
     Route: 065
  20. DOXORUBICIN [Concomitant]
     Active Substance: DOXORUBICIN
  21. PREDNISOLONE [Concomitant]
     Active Substance: PREDNISOLONE
     Indication: Peripheral T-cell lymphoma unspecified
  22. PREDNISOLONE [Concomitant]
     Active Substance: PREDNISOLONE
     Route: 065
  23. PREDNISOLONE [Concomitant]
     Active Substance: PREDNISOLONE
     Route: 065
  24. PREDNISOLONE [Concomitant]
     Active Substance: PREDNISOLONE
  25. VINCRISTINE [Concomitant]
     Active Substance: VINCRISTINE
     Indication: Peripheral T-cell lymphoma unspecified
  26. VINCRISTINE [Concomitant]
     Active Substance: VINCRISTINE
     Route: 065
  27. VINCRISTINE [Concomitant]
     Active Substance: VINCRISTINE
     Route: 065
  28. VINCRISTINE [Concomitant]
     Active Substance: VINCRISTINE

REACTIONS (2)
  - Disease progression [Unknown]
  - Drug ineffective [Unknown]
